FAERS Safety Report 19978572 (Version 1)
Quarter: 2021Q4

REPORT INFORMATION
  Report Type: Spontaneous
  Country: US (occurrence: US)
  Receive Date: 20211020
  Receipt Date: 20211020
  Transmission Date: 20220303
  Serious: No
  Sender: FDA-Public Use
  Company Number: None

PATIENT
  Age: 73 Year
  Sex: Male

DRUGS (1)
  1. EVEROLIMUS [Suspect]
     Active Substance: EVEROLIMUS
     Route: 048
     Dates: start: 202103

REACTIONS (5)
  - Pneumonia [None]
  - Asthenia [None]
  - Fatigue [None]
  - Diarrhoea [None]
  - Cancer surgery [None]

NARRATIVE: CASE EVENT DATE: 20210920
